FAERS Safety Report 6423341-5 (Version None)
Quarter: 2009Q4

REPORT INFORMATION
  Report Type: 
  Country: None (occurrence: None)
  Receive Date: 20091014
  Receipt Date: 20081023
  Transmission Date: 20100525
  Serious: Yes (Other)
  Sender: FDA-Public Use
  Company Number: 2008SP021647

PATIENT
  Sex: Female

DRUGS (1)
  1. PROVENTIL-HFA [Suspect]
     Indication: ASTHMA
     Dosage: ;PO
     Route: 048

REACTIONS (5)
  - ANAPHYLACTIC REACTION [None]
  - HYPERSENSITIVITY [None]
  - PRURITUS [None]
  - STOMATITIS [None]
  - SWELLING [None]
